FAERS Safety Report 4706124-3 (Version None)
Quarter: 2005Q2

REPORT INFORMATION
  Report Type: 
  Country: None (occurrence: None)
  Receive Date: 20050629
  Receipt Date: 20050620
  Transmission Date: 20051028
  Serious: Yes (Hospitalization)
  Sender: FDA-Public Use
  Company Number: 2005BI008644

PATIENT
  Age: 37 Year
  Sex: Female

DRUGS (3)
  1. AVONEX [Suspect]
     Indication: MULTIPLE SCLEROSIS
     Dosage: 30 UG;QE; IM
     Route: 030
     Dates: start: 19970617
  2. IBUPROFEN [Concomitant]
  3. FIORICET [Concomitant]

REACTIONS (4)
  - DIFFICULTY IN WALKING [None]
  - GAIT DISTURBANCE [None]
  - HEADACHE [None]
  - MULTIPLE SCLEROSIS [None]
